FAERS Safety Report 16292405 (Version 2)
Quarter: 2021Q1

REPORT INFORMATION
  Report Type: Spontaneous
  Country: US (occurrence: US)
  Receive Date: 20190509
  Receipt Date: 20210302
  Transmission Date: 20210419
  Serious: Yes (Other)
  Sender: FDA-Public Use
  Company Number: US-ASTRAZENECA-2019SE65157

PATIENT
  Age: 24146 Day
  Sex: Female
  Weight: 63.5 kg

DRUGS (45)
  1. PREVACID [Suspect]
     Active Substance: LANSOPRAZOLE
     Indication: GASTROOESOPHAGEAL REFLUX DISEASE
     Route: 065
     Dates: start: 201201, end: 201412
  2. ALKA?SELTZER [Concomitant]
     Active Substance: ANHYDROUS CITRIC ACID\ASPIRIN\SODIUM BICARBONATE
  3. IBUPROFEN. [Concomitant]
     Active Substance: IBUPROFEN
  4. CODEINE [Concomitant]
     Active Substance: CODEINE
  5. QVAR [Concomitant]
     Active Substance: BECLOMETHASONE DIPROPIONATE
  6. PYRIDOXIN [Concomitant]
     Active Substance: PYRIDOXINE
  7. TRAMADOL. [Concomitant]
     Active Substance: TRAMADOL
  8. LOPRESSOR [Concomitant]
     Active Substance: METOPROLOL TARTRATE
  9. CALCIUM CARBONATE. [Concomitant]
     Active Substance: CALCIUM CARBONATE
  10. DEXTROSE. [Concomitant]
     Active Substance: DEXTROSE
  11. HYDRALAZINE [Concomitant]
     Active Substance: HYDRALAZINE HYDROCHLORIDE
  12. OMEPRAZOLE SODIUM [Suspect]
     Active Substance: OMEPRAZOLE SODIUM
     Indication: GASTROOESOPHAGEAL REFLUX DISEASE
     Route: 065
  13. MAALOX ANTACID [Concomitant]
     Active Substance: ALUMINUM HYDROXIDE\DIMETHICONE\MAGNESIUM HYDROXIDE
  14. SINGULAIR [Concomitant]
     Active Substance: MONTELUKAST SODIUM
  15. HYDRODIURIL [Concomitant]
     Active Substance: HYDROCHLOROTHIAZIDE
  16. NORVASC [Concomitant]
     Active Substance: AMLODIPINE BESYLATE
  17. LACTOBACILLUS ACIDOPHILUS [Concomitant]
     Active Substance: LACTOBACILLUS ACIDOPHILUS
  18. PRILOSEC OTC [Suspect]
     Active Substance: OMEPRAZOLE MAGNESIUM
     Indication: GASTROOESOPHAGEAL REFLUX DISEASE
     Route: 048
     Dates: start: 201201, end: 201412
  19. AMOXICILLIN. [Concomitant]
     Active Substance: AMOXICILLIN
  20. PROAIR HFA [Concomitant]
     Active Substance: ALBUTEROL SULFATE
  21. VITAMIN B12 [Concomitant]
     Active Substance: CYANOCOBALAMIN
  22. TRAMADOL. [Concomitant]
     Active Substance: TRAMADOL
  23. NEXIUM [Suspect]
     Active Substance: ESOMEPRAZOLE MAGNESIUM
     Indication: GASTROOESOPHAGEAL REFLUX DISEASE
     Route: 048
     Dates: start: 201201, end: 201412
  24. PEPTO?BISMOL [Concomitant]
     Active Substance: BISMUTH SUBSALICYLATE
  25. DIAZEPAM. [Concomitant]
     Active Substance: DIAZEPAM
  26. ASPIRIN. [Concomitant]
     Active Substance: ASPIRIN
  27. COZAAR [Concomitant]
     Active Substance: LOSARTAN POTASSIUM
  28. METAMUCIL [Concomitant]
     Active Substance: PLANTAGO SEED
  29. FERROUS SULFATE. [Concomitant]
     Active Substance: FERROUS SULFATE
  30. PRILOSEC [Suspect]
     Active Substance: OMEPRAZOLE MAGNESIUM
     Indication: GASTROOESOPHAGEAL REFLUX DISEASE
     Route: 048
     Dates: start: 201201, end: 201412
  31. TUMS [Concomitant]
     Active Substance: CALCIUM CARBONATE
  32. HEPARIN [Concomitant]
     Active Substance: HEPARIN SODIUM
  33. FISH OIL [Concomitant]
     Active Substance: FISH OIL
  34. FAMOTIDINE. [Concomitant]
     Active Substance: FAMOTIDINE
  35. MYLANTA [Concomitant]
     Active Substance: ALUMINUM HYDROXIDE\DIMETHICONE\MAGNESIUM HYDROXIDE
  36. ATIVAN [Concomitant]
     Active Substance: LORAZEPAM
  37. RENVELA [Concomitant]
     Active Substance: SEVELAMER CARBONATE
  38. ROLAIDS [Concomitant]
     Active Substance: CALCIUM CARBONATE\MAGNESIUM HYDROXIDE
  39. PROVENTIL [Concomitant]
     Active Substance: ALBUTEROL
  40. LISINOPRIL. [Concomitant]
     Active Substance: LISINOPRIL
  41. OXYBUTIN [Concomitant]
     Active Substance: OXYBUTYNIN
  42. LORAZEPAM. [Concomitant]
     Active Substance: LORAZEPAM
  43. DELTASONE [Concomitant]
     Active Substance: PREDNISONE
  44. KENALOG [Concomitant]
     Active Substance: TRIAMCINOLONE ACETONIDE
  45. PREDNISONE. [Concomitant]
     Active Substance: PREDNISONE

REACTIONS (6)
  - Chronic kidney disease-mineral and bone disorder [Unknown]
  - Acute kidney injury [Not Recovered/Not Resolved]
  - End stage renal disease [Not Recovered/Not Resolved]
  - Chronic kidney disease [Not Recovered/Not Resolved]
  - Renal failure [Unknown]
  - Nephrogenic anaemia [Unknown]

NARRATIVE: CASE EVENT DATE: 20100421
